FAERS Safety Report 15499819 (Version 1)
Quarter: 2018Q4

REPORT INFORMATION
  Report Type: Spontaneous
  Country: US (occurrence: US)
  Receive Date: 20181008
  Receipt Date: 20181008
  Transmission Date: 20190205
  Serious: Yes (Other)
  Sender: FDA-Public Use
  Company Number: None

PATIENT
  Age: 62 Year
  Sex: Male

DRUGS (5)
  1. PROLIA [Suspect]
     Active Substance: DENOSUMAB
     Indication: OSTEOPOROSIS
     Dosage: ?          OTHER FREQUENCY:EVERY 6 MONTHS;?
     Route: 058
     Dates: start: 20150219
  2. MENS MULTIVITAMIN [Concomitant]
  3. BOTOX [Concomitant]
     Active Substance: ONABOTULINUMTOXINA
  4. CRANBERRY. [Concomitant]
     Active Substance: CRANBERRY
  5. LIORESAL [Concomitant]
     Active Substance: BACLOFEN

REACTIONS (1)
  - Lower limb fracture [None]

NARRATIVE: CASE EVENT DATE: 20180723
